FAERS Safety Report 7088204-3 (Version None)
Quarter: 2010Q4

REPORT INFORMATION
  Report Type: 
  Country: None (occurrence: None)
  Receive Date: 20101108
  Receipt Date: 20101025
  Transmission Date: 20110411
  Serious: Yes (Hospitalization, Other)
  Sender: FDA-Public Use
  Company Number: US-BAYER-201014246NA

PATIENT
  Age: 26 Year
  Sex: Female
  Weight: 109 kg

DRUGS (6)
  1. YAZ [Suspect]
     Indication: PRODUCT USED FOR UNKNOWN INDICATION
     Route: 048
     Dates: start: 20080201
  2. YASMIN [Suspect]
     Indication: PRODUCT USED FOR UNKNOWN INDICATION
     Route: 048
     Dates: start: 20080201
  3. IBUPROFEN [Concomitant]
     Indication: PRODUCT USED FOR UNKNOWN INDICATION
     Route: 065
  4. ANTICOAGULANTS [Concomitant]
     Indication: PRODUCT USED FOR UNKNOWN INDICATION
     Route: 065
  5. COUMADIN [Concomitant]
     Indication: DEEP VEIN THROMBOSIS
  6. ZOFRAN [Concomitant]
     Indication: DIZZINESS

REACTIONS (9)
  - DEEP VEIN THROMBOSIS [None]
  - DIZZINESS [None]
  - FATIGUE [None]
  - IRON DEFICIENCY ANAEMIA [None]
  - MENOMETRORRHAGIA [None]
  - NAUSEA [None]
  - PAIN IN EXTREMITY [None]
  - SYNCOPE [None]
  - VOMITING [None]
